FAERS Safety Report 8273757-X (Version None)
Quarter: 2012Q2

REPORT INFORMATION
  Report Type: 
  Country: None (occurrence: None)
  Receive Date: 20120409
  Receipt Date: 20120409
  Transmission Date: 20120825
  Serious: No
  Sender: FDA-Public Use
  Company Number: None

PATIENT
  Age: 49 Year
  Sex: Male
  Weight: 68.2 kg

DRUGS (1)
  1. INFLIXIMAB [Suspect]
     Indication: CROHN'S DISEASE
     Dosage: 300 MG OTHER IV
     Route: 042
     Dates: start: 20011217

REACTIONS (6)
  - PRODUCT QUALITY ISSUE [None]
  - FLUSHING [None]
  - VOMITING [None]
  - INFUSION RELATED REACTION [None]
  - DYSPNOEA [None]
  - NAUSEA [None]
